FAERS Safety Report 6381469-2 (Version None)
Quarter: 2009Q3

REPORT INFORMATION
  Report Type: 
  Country: None (occurrence: None)
  Receive Date: 20090924
  Receipt Date: 20090915
  Transmission Date: 20100115
  Serious: Yes (Hospitalization)
  Sender: FDA-Public Use
  Company Number: 2009SP017431

PATIENT
  Age: 29 Year
  Sex: Female

DRUGS (2)
  1. NUVARING [Suspect]
     Indication: CONTRACEPTION
     Dosage: 1 DF;QM;VAG
     Route: 067
     Dates: start: 20051001, end: 20060901
  2. HYDROCODONE BITARTRATE AND ACETAMINOPHEN [Concomitant]

REACTIONS (8)
  - DYSMENORRHOEA [None]
  - HEADACHE [None]
  - MENORRHAGIA [None]
  - PAIN [None]
  - PROTEIN S DECREASED [None]
  - PULMONARY EMBOLISM [None]
  - TUMOUR EXCISION [None]
  - UTERINE PROLAPSE [None]
